FAERS Safety Report 10930510 (Version 1)
Quarter: 2015Q1

REPORT INFORMATION
  Report Type: Spontaneous
  Country: US (occurrence: US)
  Receive Date: 20150319
  Receipt Date: 20150319
  Transmission Date: 20150721
  Serious: No
  Sender: FDA-Public Use
  Company Number: US-GLAXOSMITHKLINE-US2015GSK018269

PATIENT

DRUGS (30)
  1. AVANDIA [Suspect]
     Active Substance: ROSIGLITAZONE MALEATE
     Indication: PRODUCT USED FOR UNKNOWN INDICATION
     Dosage: UNK, U
  2. NORVASC [Suspect]
     Active Substance: AMLODIPINE BESYLATE
     Indication: PRODUCT USED FOR UNKNOWN INDICATION
     Dosage: UNK, U
     Dates: start: 2000
  3. ACTOS [Suspect]
     Active Substance: PIOGLITAZONE HYDROCHLORIDE
     Indication: PRODUCT USED FOR UNKNOWN INDICATION
     Dosage: UNK, U
  4. VICKS (ASCORBIC ACID) [Concomitant]
  5. NOVOLIN [Concomitant]
     Active Substance: INSULIN HUMAN
  6. TRAMADOL [Concomitant]
     Active Substance: TRAMADOL
  7. ISOSORBIDE [Concomitant]
     Active Substance: ISOSORBIDE
  8. VITAMIN D [Concomitant]
     Active Substance: CHOLECALCIFEROL
  9. GABAPENTIN. [Suspect]
     Active Substance: GABAPENTIN
     Indication: PRODUCT USED FOR UNKNOWN INDICATION
     Dosage: UNK, U
     Dates: start: 2008
  10. KEFLEX [Suspect]
     Active Substance: CEPHALEXIN
     Indication: PRODUCT USED FOR UNKNOWN INDICATION
     Dosage: UNK, U
     Dates: start: 1969
  11. LEVAQUIN [Suspect]
     Active Substance: LEVOFLOXACIN
     Indication: PRODUCT USED FOR UNKNOWN INDICATION
     Dosage: UNK, U
  12. LYRICA [Concomitant]
     Active Substance: PREGABALIN
  13. MORPHINE [Suspect]
     Active Substance: MORPHINE
     Indication: PRODUCT USED FOR UNKNOWN INDICATION
     Dosage: UNK, U
     Dates: start: 1980
  14. SULFAMETHOXAZOLE [Suspect]
     Active Substance: SULFAMETHOXAZOLE
     Indication: PRODUCT USED FOR UNKNOWN INDICATION
     Dosage: UNK, U
     Dates: start: 1980
  15. CLINDAMYCIN [Suspect]
     Active Substance: CLINDAMYCIN\CLINDAMYCIN PHOSPHATE
     Indication: PRODUCT USED FOR UNKNOWN INDICATION
     Dosage: UNK, U
     Dates: start: 1990
  16. ALLOPURINOL. [Concomitant]
     Active Substance: ALLOPURINOL
  17. SIMVASTATIN. [Concomitant]
     Active Substance: SIMVASTATIN
  18. CODEINE PHOSPHATE [Suspect]
     Active Substance: CODEINE PHOSPHATE
     Indication: PRODUCT USED FOR UNKNOWN INDICATION
     Dosage: UNK, U
  19. RENVELA [Concomitant]
     Active Substance: SEVELAMER CARBONATE
  20. LISINOPRIL. [Concomitant]
     Active Substance: LISINOPRIL
  21. MIRALAX [Concomitant]
     Active Substance: POLYETHYLENE GLYCOL 3350
  22. SYSTANE (HYPROMELLOSE 2910 (4000 MPA.S)) [Concomitant]
     Active Substance: HYPROMELLOSE 2910 (4000 MPA.S)
  23. CYMBALTA [Suspect]
     Active Substance: DULOXETINE HYDROCHLORIDE
     Indication: PRODUCT USED FOR UNKNOWN INDICATION
     Dosage: UNK, U
     Dates: start: 2008
  24. PLACID [Concomitant]
  25. METOPROLOL [Concomitant]
     Active Substance: METOPROLOL
  26. BENADRYL [Concomitant]
     Active Substance: DIPHENHYDRAMINE HYDROCHLORIDE
  27. TYLENOL [Concomitant]
     Active Substance: ACETAMINOPHEN
  28. IODINE [Suspect]
     Active Substance: IODINE
     Indication: PRODUCT USED FOR UNKNOWN INDICATION
     Dosage: UNK, U
     Dates: start: 1980
  29. FUROSEMIDE. [Concomitant]
     Active Substance: FUROSEMIDE
  30. ASPIRIN. [Concomitant]
     Active Substance: ASPIRIN

REACTIONS (5)
  - Weight increased [Unknown]
  - Pruritus [Unknown]
  - Blister [Unknown]
  - Rash generalised [Unknown]
  - Drug hypersensitivity [Unknown]
